FAERS Safety Report 12665764 (Version 6)
Quarter: 2016Q4

REPORT INFORMATION
  Report Type: Spontaneous
  Country: US (occurrence: US)
  Receive Date: 20160818
  Receipt Date: 20161222
  Transmission Date: 20170207
  Serious: Yes (Hospitalization)
  Sender: FDA-Public Use
  Company Number: US-RELYPSA-RLY2016001814

PATIENT
  Age: 56 Year
  Sex: Male

DRUGS (17)
  1. LOMOTIL [Concomitant]
     Active Substance: ATROPINE SULFATE\DIPHENOXYLATE HYDROCHLORIDE
  2. SENSIPAR [Concomitant]
     Active Substance: CINACALCET HYDROCHLORIDE
  3. VITAMIN E                          /00110501/ [Concomitant]
     Active Substance: TOCOPHEROL
  4. COLCRYS [Concomitant]
     Active Substance: COLCHICINE
  5. EDURANT [Concomitant]
     Active Substance: RILPIVIRINE HYDROCHLORIDE
  6. LYRICA [Concomitant]
     Active Substance: PREGABALIN
  7. KLONOPIN [Concomitant]
     Active Substance: CLONAZEPAM
  8. ENALAPRIL MALEATE. [Concomitant]
     Active Substance: ENALAPRIL MALEATE
  9. OXYCONTIN [Concomitant]
     Active Substance: OXYCODONE HYDROCHLORIDE
  10. PROAIR HFA [Concomitant]
     Active Substance: ALBUTEROL SULFATE
  11. RENVELA [Concomitant]
     Active Substance: SEVELAMER CARBONATE
  12. TIVICAY [Concomitant]
     Active Substance: DOLUTEGRAVIR SODIUM
  13. VIEKIRA PAK [Concomitant]
     Active Substance: DASABUVIR\OMBITASVIR\PARITAPREVIR\RITONAVIR
  14. PREDNISONE. [Concomitant]
     Active Substance: PREDNISONE
  15. VELTASSA [Suspect]
     Active Substance: PATIROMER
     Indication: HYPERKALAEMIA
     Dosage: 8.4 G, QD
     Route: 048
     Dates: start: 20160415, end: 2016
  16. VELTASSA [Suspect]
     Active Substance: PATIROMER
     Dosage: 8.4 G, QD
     Route: 048
     Dates: start: 2016
  17. PARICALCITOL. [Concomitant]
     Active Substance: PARICALCITOL

REACTIONS (3)
  - Gastrointestinal disorder [Not Recovered/Not Resolved]
  - Vomiting [Unknown]
  - Abdominal pain upper [Unknown]

NARRATIVE: CASE EVENT DATE: 20161109
